FAERS Safety Report 19943845 (Version 1)
Quarter: 2021Q4

REPORT INFORMATION
  Report Type: Spontaneous
  Country: DE (occurrence: DE)
  Receive Date: 20211011
  Receipt Date: 20211011
  Transmission Date: 20220303
  Serious: Yes (Hospitalization)
  Sender: FDA-Public Use
  Company Number: DE-ADRED-05619-01

PATIENT
  Age: 71 Year
  Sex: Male
  Weight: 90.5 kg

DRUGS (14)
  1. OXALIPLATIN [Suspect]
     Active Substance: OXALIPLATIN
     Indication: Product used for unknown indication
     Dosage: ACCORDING TO REGIMEN, SOLUTION FOR INJECTION/INFUSION
     Route: 042
  2. IRINOTECAN [Suspect]
     Active Substance: IRINOTECAN
     Indication: Product used for unknown indication
     Dosage: ACCORDING TO REGIMEN, SOLUTION FOR INJECTION/INFUSION
     Route: 042
  3. FLUOROURACIL [Suspect]
     Active Substance: FLUOROURACIL
     Indication: Product used for unknown indication
     Dosage: ACCORDING TO REGIMEN, SOLUTION FOR INJECTION/INFUSION
     Route: 042
  4. LEUCOVORIN [Suspect]
     Active Substance: LEUCOVORIN
     Indication: Product used for unknown indication
     Dosage: ACCORDING TO REGIMEN, SOLUTION FOR INJECTION/INFUSION
     Route: 042
  5. ACETAMINOPHEN [Concomitant]
     Active Substance: ACETAMINOPHEN
     Dosage: 500 MILLIGRAM, TID (500 MG, 1-1-1-0, TABLETTEN)
     Route: 048
  6. TORSEMIDE [Concomitant]
     Active Substance: TORSEMIDE
     Dosage: 5 MILLIGRAM, BID (5 MG, 1-1-0-0, TABLETTEN)
     Route: 048
  7. PIPAMPERONE [Concomitant]
     Active Substance: PIPAMPERONE
     Dosage: 40 MG, AS NEEDED, JUICE
     Route: 048
  8. PANTOPRAZOLE [Concomitant]
     Active Substance: PANTOPRAZOLE
     Dosage: 40 MILLIGRAM, BID (40 MG, 1-0-1-0, TABLETTEN   )
     Route: 048
  9. PANCRELIPASE [Concomitant]
     Active Substance: PANCRELIPASE
     Dosage: 250000 INTERNATIONAL UNIT, TID (25000 IE, 1-1-1-0, CAPSULE)
     Route: 048
  10. INSULIN GLARGINE [Concomitant]
     Active Substance: INSULIN GLARGINE
     Dosage: 14 INTERNATIONAL UNIT, QD (14 IE, 0-0-0-1, SOLUTION FOR INJECTION/INFUSION)
     Route: 058
  11. METAMIZOLE [Concomitant]
     Active Substance: METAMIZOLE
     Dosage: 500 MILLIGRAM, BID (500 MG, 1-0-0-1, TABLETTEN)
     Route: 048
  12. LEVOTHYROXINE SODIUM [Concomitant]
     Active Substance: LEVOTHYROXINE SODIUM
     Dosage: 125 MICROGRAM, QD (125 ?G, 1-0-0-0, TABLETTEN )
     Route: 048
  13. SYMBICORT [Concomitant]
     Active Substance: BUDESONIDE\FORMOTEROL FUMARATE DIHYDRATE
     Dosage: 160|4.5 ?G, 1-0-1-0, METERED DOSE INHALER
     Route: 055
  14. METOPROLOL [Concomitant]
     Active Substance: METOPROLOL
     Dosage: 95 MILLIGRAM, BID (95 MG, 1-0-1-0, RETARD-TABLETTEN)
     Route: 048

REACTIONS (3)
  - Abdominal distension [Recovering/Resolving]
  - Chills [Recovering/Resolving]
  - Pyrexia [Recovering/Resolving]
